FAERS Safety Report 20917442 (Version 1)
Quarter: 2022Q2

REPORT INFORMATION
  Report Type: Spontaneous
  Country: US (occurrence: US)
  Receive Date: 20220606
  Receipt Date: 20220606
  Transmission Date: 20220721
  Serious: Yes (Other)
  Sender: FDA-Public Use
  Company Number: US-SA-SAC20220601000804

PATIENT
  Age: 57 Year
  Sex: Male

DRUGS (2)
  1. ZANTAC [Suspect]
     Active Substance: RANITIDINE HYDROCHLORIDE
     Indication: Gastric ulcer
     Dosage: 150 MG, QW
     Route: 065
     Dates: start: 199205, end: 201905
  2. ZANTAC [Suspect]
     Active Substance: RANITIDINE HYDROCHLORIDE
     Indication: Dyspepsia

REACTIONS (3)
  - Bone cancer [Unknown]
  - Renal cancer [Unknown]
  - Prostate cancer [Unknown]

NARRATIVE: CASE EVENT DATE: 20190101
